FAERS Safety Report 14337083 (Version 2)
Quarter: 2018Q1

REPORT INFORMATION
  Report Type: Report from Study
  Country: US (occurrence: US)
  Receive Date: 20171229
  Receipt Date: 20180110
  Transmission Date: 20180509
  Serious: Yes (Hospitalization)
  Sender: FDA-Public Use
  Company Number: US-GILEAD-2017-0312720

PATIENT
  Age: 37 Year
  Sex: Male

DRUGS (2)
  1. AMBRISENTAN [Suspect]
     Active Substance: AMBRISENTAN
     Indication: PRODUCT USED FOR UNKNOWN INDICATION
     Dosage: 5 MG, QD
     Route: 065
     Dates: start: 20160914
  2. ORENITRAM [Concomitant]
     Active Substance: TREPROSTINIL

REACTIONS (5)
  - Pyrexia [Unknown]
  - Sinusitis [Unknown]
  - Lethargy [Unknown]
  - Headache [Unknown]
  - Anaemia [Unknown]
